FAERS Safety Report 6079587-1 (Version None)
Quarter: 2009Q1

REPORT INFORMATION
  Report Type: 
  Country: None (occurrence: None)
  Receive Date: 20090217
  Receipt Date: 20090209
  Transmission Date: 20090719
  Serious: Yes (Other)
  Sender: FDA-Public Use
  Company Number: JP-JNJFOC-20090200329

PATIENT

DRUGS (2)
  1. DUROTEP [Suspect]
     Indication: DRUG USE FOR UNKNOWN INDICATION
     Route: 062
  2. DUROTEP [Suspect]
     Route: 062

REACTIONS (2)
  - MALIGNANT NEOPLASM PROGRESSION [None]
  - NAUSEA [None]
